FAERS Safety Report 10380359 (Version 1)
Quarter: 2014Q1

REPORT INFORMATION
  Report Type: Spontaneous
  Country: US (occurrence: None)
  Receive Date: 20140306
  Receipt Date: 20140306
  Transmission Date: 20141002
  Serious: Yes (Other)
  Sender: FDA-Public Use
  Company Number: 163-21880-13042805

PATIENT
  Age: 86 Year
  Sex: Female
  Weight: 53.5 kg

DRUGS (3)
  1. REVLIMID (LENALIDOMIDE) (5 MILLIGRAM, CAPSULES) [Suspect]
     Indication: PLASMA CELL MYELOMA
     Dosage: 5 MG, 21 IN 21 D, PO
     Route: 048
     Dates: start: 20110825, end: 20120207
  2. COUMADIN (WARFARIN SODIUM) [Concomitant]
  3. NALTREXONE (NALTREXONE) [Concomitant]

REACTIONS (7)
  - Cholelithiasis [None]
  - Nephrolithiasis [None]
  - Dizziness [None]
  - Neuropathy peripheral [None]
  - Musculoskeletal chest pain [None]
  - Balance disorder [None]
  - Fatigue [None]
